FAERS Safety Report 23495941 (Version 3)
Quarter: 2024Q2

REPORT INFORMATION
  Report Type: Spontaneous
  Country: US (occurrence: US)
  Receive Date: 20240207
  Receipt Date: 20240408
  Transmission Date: 20240716
  Serious: Yes (Death, Hospitalization, Other)
  Sender: FDA-Public Use
  Company Number: US-BEH-2024168207

PATIENT
  Age: 36 Year
  Sex: Female
  Weight: 137.42 kg

DRUGS (1)
  1. HIZENTRA [Suspect]
     Active Substance: HUMAN IMMUNOGLOBULIN G
     Indication: Chronic inflammatory demyelinating polyradiculoneuropathy
     Dosage: 0.2 G/KG, QOW (EVERY 2 WEEKS)
     Route: 058
     Dates: start: 20181107, end: 20240131

REACTIONS (4)
  - Pulmonary thrombosis [Fatal]
  - Brain injury [Fatal]
  - Myoclonus [Fatal]
  - Status epilepticus [Fatal]

NARRATIVE: CASE EVENT DATE: 20240101
